FAERS Safety Report 13866154 (Version 1)
Quarter: 2017Q3

REPORT INFORMATION
  Report Type: Spontaneous
  Country: US (occurrence: US)
  Receive Date: 20170814
  Receipt Date: 20170814
  Transmission Date: 20171127
  Serious: Yes (Other)
  Sender: FDA-Public Use
  Company Number: US-ROCHE-1840908

PATIENT
  Sex: Female

DRUGS (14)
  1. FOLIC ACID. [Concomitant]
     Active Substance: FOLIC ACID
  2. ACTEMRA [Suspect]
     Active Substance: TOCILIZUMAB
     Indication: PRODUCT USED FOR UNKNOWN INDICATION
     Route: 058
     Dates: start: 20160428
  3. TRAMADOL. [Concomitant]
     Active Substance: TRAMADOL
  4. DOC-Q-LAX [Concomitant]
  5. BUMETANIDE. [Concomitant]
     Active Substance: BUMETANIDE
  6. AMLODIPINE [Concomitant]
     Active Substance: AMLODIPINE BESYLATE
  7. VITAMIN D3 [Concomitant]
     Active Substance: CHOLECALCIFEROL
  8. TEMAZEPAM. [Concomitant]
     Active Substance: TEMAZEPAM
  9. ALPRAZOLAM. [Concomitant]
     Active Substance: ALPRAZOLAM
  10. TRAZODONE [Concomitant]
     Active Substance: TRAZODONE HYDROCHLORIDE
  11. ZANAFLEX [Concomitant]
     Active Substance: TIZANIDINE HYDROCHLORIDE
  12. METOPROLOL. [Concomitant]
     Active Substance: METOPROLOL
  13. ADCIRCA [Concomitant]
     Active Substance: TADALAFIL
  14. ZOLOFT [Concomitant]
     Active Substance: SERTRALINE HYDROCHLORIDE

REACTIONS (3)
  - Urinary tract infection [Unknown]
  - Burn infection [Recovering/Resolving]
  - Injection site urticaria [Unknown]
